FAERS Safety Report 4416766-0 (Version None)
Quarter: 2004Q3

REPORT INFORMATION
  Report Type: 
  Country: None (occurrence: None)
  Receive Date: 20040802
  Receipt Date: 20040720
  Transmission Date: 20050211
  Serious: Yes (Hospitalization, Other)
  Sender: FDA-Public Use
  Company Number: HQWYE298321JUL04

PATIENT
  Age: 4 Year
  Sex: Female

DRUGS (7)
  1. CHILDREN'S ADVIL [Suspect]
     Indication: PYREXIA
     Dosage: 2 INTAKES DAILY FOR 2 DAYS ORAL
     Route: 048
     Dates: start: 20040601, end: 20040601
  2. NIFLURIL (NIFLUMIC ACID) [Suspect]
     Indication: EAR PAIN
     Dosage: 1 SUPPOS 1X PER 1 DAY RECTAL
     Route: 054
  3. NIFLURIL (NIFLUMIC ACID) [Suspect]
     Indication: NECK PAIN
     Dosage: 1 SUPPOS 1X PER 1 DAY RECTAL
     Route: 054
  4. NIFLURIL (NIFLUMIC ACID) [Suspect]
     Indication: PHARYNGOLARYNGEAL PAIN
     Dosage: 1 SUPPOS 1X PER 1 DAY RECTAL
     Route: 054
  5. OCTOFENE (CLOFOCTOL) [Concomitant]
  6. RHINOTROPHYL (ETHANOLAMINE TENOATE/FRAMYCETIN SULFATE) [Concomitant]
  7. PANOTILE (FLUDROCORTISOONE ACETATE/LIDOCAINE HYDROCHLORIDE/NEOMYCIN SU [Concomitant]

REACTIONS (14)
  - ASTHENIA [None]
  - CELLULITIS [None]
  - CONDITION AGGRAVATED [None]
  - DYSPHAGIA [None]
  - EYELID OEDEMA [None]
  - LOCAL SWELLING [None]
  - LYMPHADENITIS [None]
  - NECK PAIN [None]
  - NECROSIS [None]
  - OEDEMA [None]
  - OVERDOSE [None]
  - PHARYNGITIS [None]
  - PYREXIA [None]
  - SALIVARY HYPERSECRETION [None]
